FAERS Safety Report 4600026-9 (Version None)
Quarter: 2005Q1

REPORT INFORMATION
  Report Type: 
  Country: None (occurrence: None)
  Receive Date: 20050307
  Receipt Date: 20050202
  Transmission Date: 20050727
  Serious: Yes (Hospitalization, Other)
  Sender: FDA-Public Use
  Company Number: PHBS2005JP01749

PATIENT
  Age: 54 Year
  Sex: Female
  Weight: 45 kg

DRUGS (1)
  1. PARLODEL [Suspect]
     Indication: PITUITARY TUMOUR
     Dosage: 2.5 MG, QD
     Route: 048
     Dates: start: 20020510, end: 20020510

REACTIONS (11)
  - DEPRESSED LEVEL OF CONSCIOUSNESS [None]
  - HEADACHE [None]
  - HEMIANOPIA [None]
  - HYPOPHYSECTOMY [None]
  - MUSCLE RIGIDITY [None]
  - NAUSEA [None]
  - PITUITARY HAEMORRHAGE [None]
  - PITUITARY INFARCTION [None]
  - PYREXIA [None]
  - VISUAL FIELD DEFECT [None]
  - VOMITING [None]
